FAERS Safety Report 4458136-5 (Version None)
Quarter: 2004Q3

REPORT INFORMATION
  Report Type: 
  Country: None (occurrence: None)
  Receive Date: 20040924
  Receipt Date: 20040914
  Transmission Date: 20050211
  Serious: Yes (Hospitalization)
  Sender: FDA-Public Use
  Company Number: FR-GLAXOSMITHKLINE-B0345379A

PATIENT
  Age: 41 Year
  Sex: Female
  Weight: 62 kg

DRUGS (6)
  1. DEROXAT [Suspect]
     Indication: DEPRESSION
     Dosage: 20MG PER DAY
     Route: 048
     Dates: start: 20040608
  2. SIBUTRAL [Suspect]
     Indication: OBESITY
     Dosage: 10MG PER DAY
     Route: 048
     Dates: start: 20040715, end: 20040721
  3. HEPANEPHROL [Concomitant]
  4. SYMPAVAGOL [Concomitant]
  5. IMOVANE [Concomitant]
     Indication: SLEEP DISORDER
     Route: 048
     Dates: start: 20040608
  6. ALPRAZOLAM [Concomitant]
     Dates: start: 20040608

REACTIONS (10)
  - ANXIETY [None]
  - DEPRESSION [None]
  - DIARRHOEA [None]
  - DRUG INTERACTION [None]
  - HEADACHE [None]
  - HYPERHIDROSIS [None]
  - PALPITATIONS [None]
  - SEROTONIN SYNDROME [None]
  - SYNCOPE [None]
  - TACHYCARDIA [None]
